FAERS Safety Report 5231380-5 (Version None)
Quarter: 2007Q1

REPORT INFORMATION
  Report Type: 
  Country: None (occurrence: None)
  Receive Date: 20070205
  Receipt Date: 20070205
  Transmission Date: 20070707
  Serious: Yes (Other)
  Sender: FDA-Public Use
  Company Number: None

PATIENT
  Age: 21 Year
  Sex: Female

DRUGS (6)
  1. BEXTRA [Suspect]
     Dates: start: 20041201, end: 20041201
  2. MOTRIN [Suspect]
     Dates: start: 20041201, end: 20041201
  3. BIRTH CONTROL PILL [Concomitant]
  4. MULTI-VITAMIN [Concomitant]
  5. ATARAX [Concomitant]
  6. BACTRIM [Concomitant]

REACTIONS (8)
  - ABDOMINAL PAIN [None]
  - FATIGUE [None]
  - JAUNDICE [None]
  - LIVER DISORDER [None]
  - MALAISE [None]
  - PRURITUS [None]
  - SELF-MEDICATION [None]
  - WEIGHT DECREASED [None]
